FAERS Safety Report 8781204 (Version 1)
Quarter: 2012Q4

REPORT INFORMATION
  Report Type: 
  Country: US (occurrence: US)
  Receive Date: 20120913
  Receipt Date: 20120913
  Transmission Date: 20130627
  Serious: No
  Sender: FDA-Public Use
  Company Number: US-009507513-1208USA008446

PATIENT

DRUGS (2)
  1. IMPLANON [Suspect]
     Indication: CONTRACEPTION
     Dosage: 1 DF, for up to 3 years
     Route: 059
     Dates: start: 201207
  2. IMPLANON [Suspect]
     Dosage: UNK
     Dates: start: 2009

REACTIONS (1)
  - Metrorrhagia [Not Recovered/Not Resolved]
